FAERS Safety Report 6616086-X (Version None)
Quarter: 2010Q1

REPORT INFORMATION
  Report Type: 
  Country: None (occurrence: None)
  Receive Date: 20100305
  Receipt Date: 20100222
  Transmission Date: 20100710
  Serious: Yes (Other)
  Sender: FDA-Public Use
  Company Number: PHEH2008US04569

PATIENT
  Sex: Female

DRUGS (16)
  1. ZOMETA [Suspect]
  2. AREDIA [Suspect]
     Dosage: MONTHLY
  3. LEVOTHYROXINE [Concomitant]
  4. VANCOMYCIN [Concomitant]
  5. ACETAMINOPHEN AND HYDROCODONE BITARTRATE [Concomitant]
  6. LOVENOX [Concomitant]
  7. WARFARIN SODIUM [Concomitant]
  8. SYNTHROID [Concomitant]
  9. NICOTINE [Concomitant]
  10. DIFLUCAN [Concomitant]
  11. PAXIL [Concomitant]
  12. METHADONE [Concomitant]
  13. VIOXX [Concomitant]
  14. LORTAB [Concomitant]
  15. ANZEMET [Concomitant]
  16. CIPROFLOXACIN [Concomitant]

REACTIONS (18)
  - ANHEDONIA [None]
  - ANXIETY [None]
  - BONE DISORDER [None]
  - BONE LESION [None]
  - CHILLS [None]
  - DEBRIDEMENT [None]
  - DISABILITY [None]
  - INJURY [None]
  - INTERVERTEBRAL DISC DEGENERATION [None]
  - METASTASES TO BONE [None]
  - OSTEONECROSIS [None]
  - OVARIAN CYST [None]
  - PAIN [None]
  - PAIN IN JAW [None]
  - SWELLING FACE [None]
  - THYROID CANCER [None]
  - THYROIDECTOMY [None]
  - TOOTH INFECTION [None]
